FAERS Safety Report 4601413-5 (Version None)
Quarter: 2005Q1

REPORT INFORMATION
  Report Type: 
  Country: None (occurrence: None)
  Receive Date: 20050308
  Receipt Date: 20050224
  Transmission Date: 20050727
  Serious: Yes (Death)
  Sender: FDA-Public Use
  Company Number: TN-SANOFI-SYNTHELABO-A01200501104

PATIENT
  Sex: Male

DRUGS (11)
  1. ZOCOR [Concomitant]
     Indication: HYPERLIPIDAEMIA
     Dosage: 20 MG
     Route: 048
  2. LESCOL [Concomitant]
     Indication: HYPERLIPIDAEMIA
     Dosage: 40 MG
     Route: 048
     Dates: start: 20020101
  3. INSULATARD [Concomitant]
     Indication: DIABETES MELLITUS
     Dosage: 16 / 10 IU
     Route: 023
     Dates: start: 20020101
  4. OMEPRAZOLE [Concomitant]
     Indication: DRUG USE FOR UNKNOWN INDICATION
     Dosage: 20 MG
     Route: 048
     Dates: start: 20041208
  5. LOPRIL [Concomitant]
     Indication: HYPERTENSION
     Route: 048
     Dates: start: 20020101
  6. CORVASAL [Concomitant]
     Indication: ANGINA PECTORIS
     Route: 048
     Dates: start: 20020101
  7. PLAVIX [Suspect]
     Indication: ISCHAEMIC CARDIOMYOPATHY
     Dosage: 300 MG FOR 3 DAYS FOLLOWED BY 150 MG/DAY
     Route: 048
     Dates: start: 20041210, end: 20050101
  8. PLAVIX [Suspect]
     Indication: STENT PLACEMENT
     Dosage: 300 MG FOR 3 DAYS FOLLOWED BY 150 MG/DAY
     Route: 048
     Dates: start: 20041210, end: 20050101
  9. PLAVIX [Suspect]
     Route: 048
     Dates: start: 20050101, end: 20050203
  10. PLAVIX [Suspect]
     Route: 048
     Dates: start: 20050101, end: 20050203
  11. ASPEGIC 325 [Concomitant]
     Indication: MYOCARDIAL ISCHAEMIA
     Dosage: 100 MG
     Route: 048
     Dates: start: 20020101

REACTIONS (6)
  - COMA [None]
  - GENERAL PHYSICAL HEALTH DETERIORATION [None]
  - HAEMOPTYSIS [None]
  - HEPATITIS FULMINANT [None]
  - PNEUMONITIS [None]
  - PRESCRIBED OVERDOSE [None]
